FAERS Safety Report 8493153-X (Version None)
Quarter: 2012Q3

REPORT INFORMATION
  Report Type: 
  Country: None (occurrence: None)
  Receive Date: 20120706
  Receipt Date: 20120627
  Transmission Date: 20120928
  Serious: Yes (Hospitalization, Other)
  Sender: FDA-Public Use
  Company Number: IE-JNJFOC-20120203182

PATIENT
  Sex: Male

DRUGS (11)
  1. RISPERDAL [Suspect]
     Indication: ABNORMAL BEHAVIOUR
     Route: 048
     Dates: start: 20070101
  2. RUBEX [Concomitant]
     Indication: VITAMIN SUPPLEMENTATION
     Route: 048
  3. PROCHLORPERAZINE [Concomitant]
     Indication: DYSPEPSIA
     Route: 065
  4. RISPERDAL [Suspect]
     Route: 048
     Dates: start: 20040101
  5. RISPERDAL [Suspect]
     Indication: AUTISM
     Route: 048
     Dates: start: 20070101
  6. RISPERDAL [Suspect]
     Indication: ABNORMAL BEHAVIOUR
     Route: 048
     Dates: start: 20120202
  7. OMEPRAZOLE (PRISOLEC) [Concomitant]
     Indication: PRODUCT USED FOR UNKNOWN INDICATION
     Route: 065
  8. ACIDEX [Concomitant]
     Indication: GASTROOESOPHAGEAL REFLUX DISEASE
     Route: 065
  9. MILK OF MAGNESIA TAB [Concomitant]
     Indication: DYSPEPSIA
     Route: 065
  10. RISPERDAL [Suspect]
     Indication: AUTISM
     Route: 048
     Dates: start: 20040101
  11. RISPERDAL [Suspect]
     Route: 048
     Dates: start: 20120202

REACTIONS (1)
  - OESOPHAGEAL STENOSIS [None]
